FAERS Safety Report 20452492 (Version 1)
Quarter: 2022Q1

REPORT INFORMATION
  Report Type: Report from Study
  Country: FR (occurrence: FR)
  Receive Date: 20220210
  Receipt Date: 20220210
  Transmission Date: 20220424
  Serious: Yes (Other)
  Sender: FDA-Public Use
  Company Number: FR-ABBVIE-19K-056-2855802-00

PATIENT
  Age: 53 Year
  Sex: Male
  Weight: 65 kg

DRUGS (24)
  1. VENETOCLAX [Suspect]
     Active Substance: VENETOCLAX
     Indication: Chronic lymphocytic leukaemia
     Route: 048
     Dates: start: 20181123, end: 20181129
  2. VENETOCLAX [Suspect]
     Active Substance: VENETOCLAX
     Route: 048
     Dates: start: 20181130, end: 20181206
  3. VENETOCLAX [Suspect]
     Active Substance: VENETOCLAX
     Route: 048
     Dates: start: 20181207, end: 20181213
  4. VENETOCLAX [Suspect]
     Active Substance: VENETOCLAX
     Route: 048
     Dates: start: 20181214, end: 20181220
  5. VENETOCLAX [Suspect]
     Active Substance: VENETOCLAX
     Route: 048
     Dates: start: 20181221, end: 20190130
  6. VENETOCLAX [Suspect]
     Active Substance: VENETOCLAX
     Route: 048
     Dates: start: 20190131, end: 20190812
  7. VENETOCLAX [Suspect]
     Active Substance: VENETOCLAX
     Route: 048
     Dates: start: 20190813, end: 20191217
  8. VENETOCLAX [Suspect]
     Active Substance: VENETOCLAX
     Route: 048
     Dates: start: 20191218, end: 20200309
  9. VENETOCLAX [Suspect]
     Active Substance: VENETOCLAX
     Route: 048
     Dates: start: 20200310, end: 20210111
  10. VENETOCLAX [Suspect]
     Active Substance: VENETOCLAX
     Route: 048
     Dates: start: 20210112, end: 20211019
  11. PENICILLIN V [Concomitant]
     Active Substance: PENICILLIN V
     Indication: Infection prophylaxis
     Dates: start: 2017
  12. VALACYCLOVIR HYDROCHLORIDE [Concomitant]
     Active Substance: VALACYCLOVIR HYDROCHLORIDE
     Indication: Infection prophylaxis
     Dates: start: 2017
  13. BACTRIM [Concomitant]
     Active Substance: SULFAMETHOXAZOLE\TRIMETHOPRIM
     Indication: Infection prophylaxis
     Dates: start: 2017
  14. ALLOPURINOL [Concomitant]
     Active Substance: ALLOPURINOL
     Indication: Prophylaxis
     Dates: start: 20181124, end: 20190225
  15. ALLOPURINOL [Concomitant]
     Active Substance: ALLOPURINOL
     Dates: start: 20210310, end: 20210324
  16. URSODIOL [Concomitant]
     Active Substance: URSODIOL
     Indication: Cholestasis
     Dates: start: 201808, end: 20190628
  17. URSODIOL [Concomitant]
     Active Substance: URSODIOL
     Indication: Hepatic cytolysis
  18. FASTURTEC [Concomitant]
     Active Substance: RASBURICASE
     Indication: Prophylaxis
     Dates: start: 20181122, end: 20181206
  19. IBERDOMIDE [Concomitant]
     Active Substance: IBERDOMIDE
     Indication: Chronic lymphocytic leukaemia
     Dates: start: 20211026
  20. KARDEGIC [Concomitant]
     Active Substance: ASPIRIN DL-LYSINE
     Indication: Chemotherapy side effect prophylaxis
     Dates: start: 20211026, end: 20211026
  21. COMIRNATY [Concomitant]
     Active Substance: TOZINAMERAN
     Indication: COVID-19 immunisation
     Dates: start: 20210215, end: 20210215
  22. COMIRNATY [Concomitant]
     Active Substance: TOZINAMERAN
     Dates: start: 20210315, end: 20210315
  23. COMIRNATY [Concomitant]
     Active Substance: TOZINAMERAN
     Dates: start: 20210701, end: 20210701
  24. COMIRNATY [Concomitant]
     Active Substance: TOZINAMERAN
     Dates: start: 20211228, end: 20211228

REACTIONS (61)
  - Hypercalcaemia [Recovered/Resolved]
  - Renal failure [Recovered/Resolved]
  - Monoparesis [Recovered/Resolved]
  - Furuncle [Recovered/Resolved]
  - Lymphoedema [Recovered/Resolved]
  - Blister [Recovered/Resolved]
  - Hypomagnesaemia [Recovered/Resolved]
  - Leukopenia [Recovered/Resolved]
  - Hyperkalaemia [Recovered/Resolved]
  - Blood creatinine increased [Recovered/Resolved]
  - Neutropenia [Recovered/Resolved]
  - Anaemia [Recovered/Resolved]
  - Diarrhoea [Recovered/Resolved]
  - Back pain [Recovered/Resolved]
  - Lipoma [Recovered/Resolved]
  - Abdominal pain upper [Recovered/Resolved]
  - Nasal congestion [Recovered/Resolved]
  - Pruritus [Recovered/Resolved]
  - Myalgia [Not Recovered/Not Resolved]
  - Arthralgia [Not Recovered/Not Resolved]
  - Hyperkeratosis [Recovered/Resolved]
  - Anaemia [Recovered/Resolved]
  - Hypotension [Recovered/Resolved]
  - Asthenia [Recovered/Resolved]
  - Leukopenia [Not Recovered/Not Resolved]
  - Swelling [Recovered/Resolved]
  - Scab [Recovered/Resolved]
  - Blister [Recovering/Resolving]
  - Furuncle [Recovering/Resolving]
  - Neutropenia [Not Recovered/Not Resolved]
  - Back pain [Unknown]
  - Lipoma [Unknown]
  - Abdominal pain upper [Unknown]
  - Nasal congestion [Unknown]
  - Pruritus [Unknown]
  - Hypotension [Unknown]
  - Asthenia [Unknown]
  - Skin papilloma [Recovered/Resolved]
  - Renal colic [Recovered/Resolved]
  - Fatigue [Not Recovered/Not Resolved]
  - Skin lesion [Not Recovered/Not Resolved]
  - Basal cell carcinoma [Recovered/Resolved]
  - Pruritus [Unknown]
  - Anaemia [Not Recovered/Not Resolved]
  - Hyperthermia [Recovered/Resolved]
  - Dizziness [Recovered/Resolved]
  - Lymphadenopathy [Recovered/Resolved]
  - Pruritus [Recovered/Resolved]
  - Cell death [Recovered/Resolved]
  - Cholestasis [Recovered/Resolved]
  - Neutropenia [Recovered/Resolved]
  - Back pain [Recovered/Resolved]
  - Influenza [Recovered/Resolved]
  - Neutropenia [Recovered/Resolved]
  - Hyperuricaemia [Recovered/Resolved]
  - Neutropenia [Recovered/Resolved]
  - Hyperkalaemia [Recovered/Resolved]
  - Hyperuricaemia [Recovered/Resolved]
  - Hyperkalaemia [Recovered/Resolved]
  - Neutropenia [Recovered/Resolved]
  - Hyperkalaemia [Recovered/Resolved]

NARRATIVE: CASE EVENT DATE: 20181125
